FAERS Safety Report 15258848 (Version 1)
Quarter: 2018Q3

REPORT INFORMATION
  Report Type: Spontaneous
  Country: CN (occurrence: CN)
  Receive Date: 20180809
  Receipt Date: 20180809
  Transmission Date: 20181010
  Serious: Yes (Hospitalization)
  Sender: FDA-Public Use
  Company Number: CN-009507513-1808CHN002879

PATIENT
  Age: 39 Year
  Sex: Male
  Weight: 53 kg

DRUGS (2)
  1. LIDOCAINE HYDROCHLORIDE. [Suspect]
     Active Substance: LIDOCAINE HYDROCHLORIDE
     Indication: NEURODERMATITIS
     Dosage: 0.1 G, QD
     Dates: start: 20180426, end: 20180426
  2. DIPROSPAN [Suspect]
     Active Substance: BETAMETHASONE DIPROPIONATE\BETAMETHASONE SODIUM PHOSPHATE
     Indication: NEURODERMATITIS
     Dosage: 1 DF, QD
     Dates: start: 20180426, end: 20180426

REACTIONS (2)
  - Pain [Recovering/Resolving]
  - Palpitations [Recovering/Resolving]

NARRATIVE: CASE EVENT DATE: 20180426
